FAERS Safety Report 6127198-1 (Version None)
Quarter: 2009Q1

REPORT INFORMATION
  Report Type: 
  Country: None (occurrence: None)
  Receive Date: 20090320
  Receipt Date: 20090317
  Transmission Date: 20090719
  Serious: Yes (Death)
  Sender: FDA-Public Use
  Company Number: US-GENENTECH-277404

PATIENT
  Sex: Male
  Weight: 92.7 kg

DRUGS (26)
  1. OMALIZUMAB [Suspect]
     Indication: ASTHMA
     Dosage: 375 MG, Q2W
     Dates: start: 20060428
  2. IMMUNOTHERAPY (ALLERGEN UNKNOWN) [Concomitant]
     Indication: HYPERSENSITIVITY
     Dosage: UNK UNK, UNKNOWN
     Route: 065
  3. THEO-DUR [Concomitant]
     Indication: ASTHMA
     Dosage: UNK VIAL, UNKNOWN
     Route: 065
  4. THEO-DUR [Concomitant]
     Indication: HYPERSENSITIVITY
  5. PROVENTIL [Concomitant]
     Indication: ASTHMA
     Dosage: UNK UNK, UNKNOWN
     Route: 065
  6. PROVENTIL [Concomitant]
     Indication: HYPERSENSITIVITY
  7. RHINOCORT [Concomitant]
     Indication: ASTHMA
     Dosage: UNK UNK, UNKNOWN
     Route: 065
  8. RHINOCORT [Concomitant]
     Indication: HYPERSENSITIVITY
  9. CHLOR-TRIMETON [Concomitant]
     Indication: ASTHMA
     Dosage: UNK UNK, UNKNOWN
     Route: 065
  10. CHLOR-TRIMETON [Concomitant]
     Indication: HYPERSENSITIVITY
  11. ALBUTEROL [Concomitant]
     Indication: DRUG USE FOR UNKNOWN INDICATION
  12. TRICOR [Concomitant]
     Indication: DRUG USE FOR UNKNOWN INDICATION
  13. ALLERGY SHOT [Concomitant]
     Indication: DRUG USE FOR UNKNOWN INDICATION
  14. NASONEX [Concomitant]
     Indication: DRUG USE FOR UNKNOWN INDICATION
  15. NEXIUM [Concomitant]
     Indication: DRUG USE FOR UNKNOWN INDICATION
  16. NIFEDIPINE [Concomitant]
     Indication: DRUG USE FOR UNKNOWN INDICATION
  17. SYMBICORT [Concomitant]
     Indication: DRUG USE FOR UNKNOWN INDICATION
  18. LISINOPRIL [Concomitant]
     Indication: DRUG USE FOR UNKNOWN INDICATION
  19. NITROGLYCERIN [Concomitant]
     Indication: DRUG USE FOR UNKNOWN INDICATION
  20. ASPIRIN [Concomitant]
     Indication: DRUG USE FOR UNKNOWN INDICATION
  21. OXYGEN [Concomitant]
     Indication: DRUG USE FOR UNKNOWN INDICATION
  22. ACTOS [Concomitant]
     Indication: DRUG USE FOR UNKNOWN INDICATION
  23. CRESTOR [Concomitant]
     Indication: DRUG USE FOR UNKNOWN INDICATION
  24. ZETIA [Concomitant]
     Indication: DRUG USE FOR UNKNOWN INDICATION
  25. LORTAB [Concomitant]
     Indication: DRUG USE FOR UNKNOWN INDICATION
  26. TRAMADOL HCL [Concomitant]

REACTIONS (1)
  - CORONARY ARTERY DISEASE [None]
